FAERS Safety Report 22028563 (Version 2)
Quarter: 2023Q1

REPORT INFORMATION
  Report Type: Other
  Country: US (occurrence: None)
  Receive Date: 20230223
  Receipt Date: 20230307
  Transmission Date: 20230417
  Serious: Yes (Other)
  Sender: FDA-Public Use
  Company Number: US-ROCHE-3290339

PATIENT
  Age: 58 Year
  Sex: Female

DRUGS (3)
  1. OCREVUS [Suspect]
     Active Substance: OCRELIZUMAB
     Indication: Relapsing-remitting multiple sclerosis
     Dosage: DATE OF SERVICE 22/JAN/2021
     Route: 065
     Dates: start: 20210105
  2. OCREVUS [Suspect]
     Active Substance: OCRELIZUMAB
     Dosage: DATE OF SERVICE 04/MAR/2022
     Route: 065
     Dates: start: 20210728
  3. GABAPENTIN [Suspect]
     Active Substance: GABAPENTIN
     Indication: Relapsing-remitting multiple sclerosis
     Route: 065

REACTIONS (1)
  - Lung neoplasm malignant [Not Recovered/Not Resolved]

NARRATIVE: CASE EVENT DATE: 20230101
